FAERS Safety Report 6355530-2 (Version None)
Quarter: 2009Q3

REPORT INFORMATION
  Report Type: 
  Country: None (occurrence: None)
  Receive Date: 20090914
  Receipt Date: 20090910
  Transmission Date: 20100115
  Serious: Yes (Death, Hospitalization, Other)
  Sender: FDA-Public Use
  Company Number: PHHY2009BR38903

PATIENT
  Sex: Female

DRUGS (1)
  1. FORASEQ [Suspect]
     Indication: RESPIRATORY FAILURE
     Dosage: UNK
     Dates: start: 20040101

REACTIONS (4)
  - CARDIAC ARREST [None]
  - NODULE [None]
  - PNEUMONIA [None]
  - RESPIRATORY FAILURE [None]
